FAERS Safety Report 12240059 (Version 1)
Quarter: 2016Q2

REPORT INFORMATION
  Report Type: Spontaneous
  Country: US (occurrence: US)
  Receive Date: 20160405
  Receipt Date: 20160405
  Transmission Date: 20160815
  Serious: No
  Sender: FDA-Public Use
  Company Number: US-ROCHE-1560994

PATIENT
  Sex: Male

DRUGS (9)
  1. CLORAZEPATE [Concomitant]
     Active Substance: CLORAZEPATE DIPOTASSIUM
     Route: 065
  2. GABAPENTIN. [Concomitant]
     Active Substance: GABAPENTIN
     Route: 065
  3. SAW PALMETTO [Concomitant]
     Active Substance: SAW PALMETTO
  4. XENICAL [Suspect]
     Active Substance: ORLISTAT
     Indication: WEIGHT DECREASED
     Dosage: WITH A FATTY MEAL
     Route: 048
     Dates: start: 20150312
  5. LISINOPRIL. [Concomitant]
     Active Substance: LISINOPRIL
     Indication: HYPERTENSION
     Route: 065
  6. ALLI [Concomitant]
     Active Substance: ORLISTAT
  7. MELATONIN [Interacting]
     Active Substance: MELATONIN
     Dosage: CONTROLLED RELEASE
     Route: 065
  8. DIPHENHYDRAMINE HCL [Interacting]
     Active Substance: DIPHENHYDRAMINE HYDROCHLORIDE
     Indication: SLEEP DISORDER
     Dosage: TAKE 2 IF NEEDED
     Route: 065
  9. AMBIEN [Concomitant]
     Active Substance: ZOLPIDEM TARTRATE

REACTIONS (10)
  - Pain [Not Recovered/Not Resolved]
  - Sleep disorder [Recovering/Resolving]
  - Vitamin D decreased [Unknown]
  - Bowel movement irregularity [Not Recovered/Not Resolved]
  - Visual impairment [Not Recovered/Not Resolved]
  - Drug ineffective [Unknown]
  - Drug interaction [Unknown]
  - Constipation [Not Recovered/Not Resolved]
  - Infrequent bowel movements [Not Recovered/Not Resolved]
  - Abdominal pain [Not Recovered/Not Resolved]
